FAERS Safety Report 4581797-7 (Version None)
Quarter: 2005Q1

REPORT INFORMATION
  Report Type: 
  Country: None (occurrence: None)
  Receive Date: 20050127
  Receipt Date: 20040910
  Transmission Date: 20050727
  Serious: No
  Sender: FDA-Public Use
  Company Number: USA040977913

PATIENT
  Age: 24 Year
  Sex: Male
  Weight: 82 kg

DRUGS (1)
  1. STRATTERA [Suspect]
     Indication: ATTENTION DEFICIT/HYPERACTIVITY DISORDER
     Dosage: 40 MG/1 DAY
     Dates: start: 20040909, end: 20040910

REACTIONS (4)
  - CHILLS [None]
  - HEART RATE INCREASED [None]
  - HYPERHIDROSIS [None]
  - MYDRIASIS [None]
